FAERS Safety Report 4850847-2 (Version None)
Quarter: 2005Q4

REPORT INFORMATION
  Report Type: 
  Country: None (occurrence: None)
  Receive Date: 20051208
  Receipt Date: 20051130
  Transmission Date: 20060501
  Serious: Yes (Hospitalization)
  Sender: FDA-Public Use
  Company Number: 2005142605

PATIENT
  Age: 79 Year
  Sex: Male

DRUGS (21)
  1. LIPITOR [Suspect]
     Indication: HYPERCHOLESTEROLAEMIA
     Dosage: 10 MG (1 IN 1 D), ORAL
     Route: 048
     Dates: start: 20010718, end: 20050920
  2. HALCION [Concomitant]
  3. ATARAX [Concomitant]
  4. BUFFERIN (ACETYLSALICYLIC ACID, ALUMINIUM GLYCINATGE, MAGNESIUM CARBON [Concomitant]
  5. VERAPAMIL HYDROCHLORIDE [Concomitant]
  6. NICHISATE (TICLOPIDINE HYDROCHLORIDE) [Concomitant]
  7. MAGNESIUM OXIDE (MAGNESIUM OXIDE) [Concomitant]
  8. MUCOSOLVAN (AMBROXOL HYDROCHLORIDE) [Concomitant]
  9. WARFARIN SODIUM [Concomitant]
  10. DIART (AZOSEMIDE) [Concomitant]
  11. DIGOXIN [Concomitant]
  12. TETRAMIDE (MIANSERIN HYDROCHLORIDE) [Concomitant]
  13. CALBLOCK (AZELNIDIPINE) [Concomitant]
  14. SELBEX (TEPRENONE) [Concomitant]
  15. LOPRESSOR [Concomitant]
  16. BEPRICOR (BEPRIDIL) [Concomitant]
  17. UNIPHYL (TEOPHYLLINE) [Concomitant]
  18. MAGNESIUM (ALLOPURINOL) [Concomitant]
  19. ALLOPURINOL [Concomitant]
  20. VOLTAREN [Concomitant]
  21. URALYT-U (POTASSIUM CITRATE, SODIUM CITRATE) [Concomitant]

REACTIONS (16)
  - ALANINE AMINOTRANSFERASE INCREASED [None]
  - ALDOLASE DECREASED [None]
  - ASPARTATE AMINOTRANSFERASE INCREASED [None]
  - ASTHENIA [None]
  - BLOOD CREATINE PHOSPHOKINASE INCREASED [None]
  - COLLAGEN DISORDER [None]
  - DRUG ERUPTION [None]
  - DRUG INEFFECTIVE [None]
  - HEPATIC FUNCTION ABNORMAL [None]
  - HYPERPLASIA [None]
  - PNEUMONIA BACTERIAL [None]
  - POLYMYOSITIS [None]
  - PRURITUS [None]
  - PYREXIA [None]
  - RASH [None]
  - SCLERODERMA [None]
